FAERS Safety Report 8156953 (Version 3)
Quarter: 2015Q2

REPORT INFORMATION
  Report Type: Report from Study
  Country: US (occurrence: US)
  Receive Date: 20110926
  Receipt Date: 20150513
  Transmission Date: 20150821
  Serious: Yes (Hospitalization)
  Sender: FDA-Public Use
  Company Number: PHHO2010US15385

PATIENT
  Age: 66 Year
  Sex: Male

DRUGS (13)
  1. ENALAPRIL [Concomitant]
     Active Substance: ENALAPRIL
  2. TERAZOSIN [Concomitant]
     Active Substance: TERAZOSIN\TERAZOSIN HYDROCHLORIDE
  3. CHROMIUM [Concomitant]
     Active Substance: CHROMIC CHLORIDE\CHROMIUM
  4. NITROGLYCERIN. [Suspect]
     Active Substance: NITROGLYCERIN
  5. CARVEDILOL. [Concomitant]
     Active Substance: CARVEDILOL
  6. SPIRONOLACTONE. [Concomitant]
     Active Substance: SPIRONOLACTONE
  7. FISH OIL [Concomitant]
     Active Substance: FISH OIL
  8. LUCENTIS [Suspect]
     Active Substance: RANIBIZUMAB
     Indication: DIABETIC RETINAL OEDEMA
     Dosage: 0.3 MG, UNK
     Route: 031
     Dates: start: 20081023, end: 20081023
  9. HYDROCHLOROTHIAZIDE. [Concomitant]
     Active Substance: HYDROCHLOROTHIAZIDE
  10. ASPIRIN. [Concomitant]
     Active Substance: ASPIRIN
  11. LANTUS [Concomitant]
     Active Substance: INSULIN GLARGINE
  12. METFORMIN [Concomitant]
     Active Substance: METFORMIN HYDROCHLORIDE
  13. COENZYME Q10 [Concomitant]
     Active Substance: UBIDECARENONE

REACTIONS (8)
  - Syncope [Unknown]
  - Myocardial infarction [Recovered/Resolved]
  - Chest pain [Recovered/Resolved]
  - Myocardial necrosis marker increased [Unknown]
  - Loss of consciousness [Unknown]
  - Angina pectoris [Unknown]
  - Hyperhidrosis [Unknown]
  - Pallor [Unknown]

NARRATIVE: CASE EVENT DATE: 20100831
